FAERS Safety Report 8018288-7 (Version None)
Quarter: 2012Q1

REPORT INFORMATION
  Report Type: 
  Country: None (occurrence: None)
  Receive Date: 20120103
  Receipt Date: 20111227
  Transmission Date: 20120608
  Serious: Yes (Other)
  Sender: FDA-Public Use
  Company Number: US-BAYER-2011-124194

PATIENT
  Age: 75 Year
  Sex: Female
  Weight: 99 kg

DRUGS (3)
  1. LEVOTHYROXINE SODIUM [Concomitant]
  2. ALEVE (CAPLET) [Suspect]
     Indication: ARTHRITIS
     Dosage: 1 DF, PRN
     Route: 048
     Dates: start: 19940101, end: 20100101
  3. MULTI-VITAMIN [Concomitant]

REACTIONS (2)
  - ABDOMINAL DISCOMFORT [None]
  - VISION BLURRED [None]
